FAERS Safety Report 9135265 (Version 1)
Quarter: 2013Q1

REPORT INFORMATION
  Report Type: Spontaneous
  Country: US (occurrence: US)
  Receive Date: 20130304
  Receipt Date: 20130304
  Transmission Date: 20140127
  Serious: No
  Sender: FDA-Public Use
  Company Number: US-BAYER-2013-026641

PATIENT
  Sex: Female

DRUGS (5)
  1. ALEVE CAPLET/TABLET,MIDOL EXTENDED RELIEF CAPLET [Suspect]
     Indication: ARTHRITIS
     Dosage: 1 DF, TID
     Route: 048
     Dates: start: 20130204
  2. MULTIVITAMIN [Concomitant]
  3. CALCIUM [Concomitant]
  4. FISH OIL [Concomitant]
  5. VITAMIN C [Concomitant]

REACTIONS (2)
  - Infrequent bowel movements [Not Recovered/Not Resolved]
  - Incorrect drug administration duration [None]
